FAERS Safety Report 7417010-2 (Version None)
Quarter: 2011Q2

REPORT INFORMATION
  Report Type: 
  Country: None (occurrence: None)
  Receive Date: 20110407
  Receipt Date: 20110331
  Transmission Date: 20111010
  Serious: Yes (Hospitalization)
  Sender: FDA-Public Use
  Company Number: B0710477A

PATIENT
  Age: 54 Year
  Sex: Male

DRUGS (3)
  1. CIPROFIBRATE (FORMULATION UNKNOWN) (CIPROFIBRATE) [Suspect]
  2. CARVEDILOL [Suspect]
  3. ENOXAPARIN [Suspect]

REACTIONS (2)
  - HEPATOTOXICITY [None]
  - NAUSEA [None]
